FAERS Safety Report 23460784 (Version 2)
Quarter: 2024Q1

REPORT INFORMATION
  Report Type: Spontaneous
  Country: CA (occurrence: None)
  Receive Date: 20240131
  Receipt Date: 20240221
  Transmission Date: 20240410
  Serious: Yes (Other)
  Sender: FDA-Public Use
  Company Number: CA-PFIZER INC-202400000984

PATIENT
  Age: 37 Year
  Sex: Female

DRUGS (4)
  1. METHOTREXATE [Suspect]
     Active Substance: METHOTREXATE
     Indication: Product used for unknown indication
  2. SULFASALAZINE [Suspect]
     Active Substance: SULFASALAZINE
     Indication: Product used for unknown indication
  3. PLAQUENIL [Concomitant]
     Active Substance: HYDROXYCHLOROQUINE SULFATE
  4. PREDNISONE [Concomitant]
     Active Substance: PREDNISONE

REACTIONS (8)
  - Ear infection [Recovered/Resolved]
  - Erythema [Unknown]
  - Pruritus [Unknown]
  - Skin exfoliation [Unknown]
  - Scab [Unknown]
  - Skin warm [Unknown]
  - Pain of skin [Unknown]
  - Skin lesion [Not Recovered/Not Resolved]

NARRATIVE: CASE EVENT DATE: 20231201
